FAERS Safety Report 6808973-4 (Version None)
Quarter: 2010Q2

REPORT INFORMATION
  Report Type: 
  Country: None (occurrence: None)
  Receive Date: 20100630
  Receipt Date: 20091120
  Transmission Date: 20101027
  Serious: No
  Sender: FDA-Public Use
  Company Number: US-PFIZER INC-2009278109

PATIENT
  Sex: Female
  Weight: 79.378 kg

DRUGS (5)
  1. ALPRAZOLAM [Suspect]
     Indication: PANIC ATTACK
     Dosage: 0.25 MG, AS NEEDED
     Dates: start: 20090601
  2. LEVBID [Concomitant]
  3. HYOSCYAMINE [Concomitant]
     Indication: COELIAC DISEASE
  4. TYLENOL [Concomitant]
     Dosage: FREQUENCY: AS NEEDED,
  5. ACETYLSALICYLIC ACID [Concomitant]
     Dosage: FREQUENCY: AS NEEDED,

REACTIONS (1)
  - DRUG INEFFECTIVE [None]
